FAERS Safety Report 8440019 (Version 2)
Quarter: 2015Q1

REPORT INFORMATION
  Report Type: Spontaneous
  Country: US (occurrence: None)
  Receive Date: 20120222
  Receipt Date: 20150226
  Transmission Date: 20150721
  Serious: Yes (Other)
  Sender: FDA-Public Use
  Company Number: TPA2012A00771

PATIENT
  Age: 62 Year
  Sex: Male
  Weight: 68.04 kg

DRUGS (2)
  1. JANUMET (JANUMET) [Concomitant]
  2. ACTOS [Suspect]
     Active Substance: PIOGLITAZONE HYDROCHLORIDE
     Indication: TYPE 2 DIABETES MELLITUS
     Dates: start: 20081027, end: 20110524

REACTIONS (1)
  - Bladder transitional cell carcinoma [None]

NARRATIVE: CASE EVENT DATE: 20100127
